FAERS Safety Report 11504576 (Version 1)
Quarter: 2015Q3

REPORT INFORMATION
  Report Type: Spontaneous
  Country: US (occurrence: US)
  Receive Date: 20150915
  Receipt Date: 20150915
  Transmission Date: 20151125
  Serious: No
  Sender: FDA-Public Use
  Company Number: US-ROCHE-1004382

PATIENT
  Sex: Male

DRUGS (2)
  1. PEGASYS [Suspect]
     Active Substance: PEGINTERFERON ALFA-2A
     Indication: HEPATITIS C
     Route: 058
  2. RIBAVIRIN. [Suspect]
     Active Substance: RIBAVIRIN
     Indication: HEPATITIS C
     Route: 048

REACTIONS (11)
  - Psychomotor hyperactivity [Recovered/Resolved]
  - Insomnia [Unknown]
  - Decreased appetite [Unknown]
  - Memory impairment [Recovered/Resolved]
  - Fatigue [Unknown]
  - Memory impairment [Unknown]
  - Weight decreased [Unknown]
  - Irritability [Recovered/Resolved]
  - Ill-defined disorder [Recovered/Resolved]
  - Unevaluable event [Recovered/Resolved]
  - Anger [Recovered/Resolved]
